FAERS Safety Report 5328102-6 (Version None)
Quarter: 2007Q2

REPORT INFORMATION
  Report Type: 
  Country: None (occurrence: None)
  Receive Date: 20070514
  Receipt Date: 20070508
  Transmission Date: 20071010
  Serious: Yes (Death, Hospitalization)
  Sender: FDA-Public Use
  Company Number: 163-21880-07040920

PATIENT
  Age: 73 Year
  Sex: Male

DRUGS (1)
  1. REVLIMID [Suspect]
     Indication: MYELODYSPLASTIC SYNDROME
     Dosage: 10 MG, 1 IN 1 D, ORAL
     Route: 048
     Dates: start: 20070228

REACTIONS (5)
  - DISEASE PROGRESSION [None]
  - LEUKAEMIA RECURRENT [None]
  - MYELODYSPLASTIC SYNDROME [None]
  - PNEUMONIA [None]
  - PULMONARY EMBOLISM [None]
